FAERS Safety Report 17375087 (Version 1)
Quarter: 2020Q1

REPORT INFORMATION
  Report Type: Spontaneous
  Country: US (occurrence: US)
  Receive Date: 20200206
  Receipt Date: 20200206
  Transmission Date: 20200409
  Serious: Yes (Death, Hospitalization, Other)
  Sender: FDA-Public Use
  Company Number: US-ALVOGEN-2020-ALVOGEN-102554

PATIENT
  Age: 81 Year
  Sex: Male

DRUGS (2)
  1. LEVETIRACETAM. [Suspect]
     Active Substance: LEVETIRACETAM
     Indication: SUICIDE ATTEMPT
     Route: 048
  2. LACOSAMIDE. [Suspect]
     Active Substance: LACOSAMIDE
     Indication: SUICIDE ATTEMPT
     Dosage: 200 MG
     Route: 048

REACTIONS (6)
  - Ventricular tachycardia [Fatal]
  - Seizure [Fatal]
  - Atrioventricular block [Fatal]
  - Bradycardia [Fatal]
  - Completed suicide [Fatal]
  - Toxicity to various agents [Fatal]
